FAERS Safety Report 17884424 (Version 7)
Quarter: 2021Q4

REPORT INFORMATION
  Report Type: Spontaneous
  Country: US (occurrence: US)
  Receive Date: 20200611
  Receipt Date: 20211123
  Transmission Date: 20220303
  Serious: Yes (Other)
  Sender: FDA-Public Use
  Company Number: US-PFIZER INC-2020137578

PATIENT
  Age: 69 Year
  Sex: Female

DRUGS (4)
  1. INLYTA [Suspect]
     Active Substance: AXITINIB
     Indication: Renal cancer metastatic
     Dosage: 5 MG, CYCLIC (EVERY 12 HOURS FOR 28 DAYS)
     Route: 048
  2. INLYTA [Suspect]
     Active Substance: AXITINIB
     Dosage: 2 MG, CYCLIC EVERY 12 (TWELVE) HOURS FOR 28 DAYS
     Route: 048
  3. INLYTA [Suspect]
     Active Substance: AXITINIB
     Dosage: 2 MG, 2X/DAY
     Route: 048
  4. INLYTA [Suspect]
     Active Substance: AXITINIB
     Dosage: 1 MG, 2X/DAY (TAKE 2 TABLETS (2 MG TOTAL) BY MOUTH EVERY 12 (TWELVE) HOURS)
     Route: 048

REACTIONS (2)
  - Diabetes mellitus [Unknown]
  - Protein urine present [Unknown]
